FAERS Safety Report 10292565 (Version 3)
Quarter: 2014Q3

REPORT INFORMATION
  Report Type: Spontaneous
  Country: CH (occurrence: CH)
  Receive Date: 20140710
  Receipt Date: 20140715
  Transmission Date: 20150326
  Serious: Yes (Other)
  Sender: FDA-Public Use
  Company Number: CH-GILEAD-2014-0106572

PATIENT
  Age: 11 Year
  Sex: Male
  Weight: 56.5 kg

DRUGS (14)
  1. DOLUTEGRAVIR [Concomitant]
     Active Substance: DOLUTEGRAVIR
  2. FOSAMPRENAVIR W/RITONAVIR [Concomitant]
  3. VIREAD [Suspect]
     Active Substance: TENOFOVIR DISOPROXIL FUMARATE
     Indication: HIV INFECTION
     Dosage: UNK
     Route: 065
     Dates: start: 2009
  4. DARUNAVIR [Concomitant]
     Active Substance: DARUNAVIR
  5. ZIDOVUDINE. [Concomitant]
     Active Substance: ZIDOVUDINE
  6. TRUVADA [Suspect]
     Active Substance: EMTRICITABINE\TENOFOVIR DISOPROXIL FUMARATE
     Indication: HIV INFECTION
     Dosage: 1 DF, QD
     Route: 065
     Dates: start: 201305
  7. ABACAVIR [Concomitant]
     Active Substance: ABACAVIR
     Indication: HIV INFECTION
     Dosage: UNK
  8. ZERIT [Concomitant]
     Active Substance: STAVUDINE
  9. RITONAVIR [Concomitant]
     Active Substance: RITONAVIR
  10. LAMIVUDINE. [Concomitant]
     Active Substance: LAMIVUDINE
  11. EFAVIRENZ [Concomitant]
     Active Substance: EFAVIRENZ
  12. RALTEGRAVIR [Concomitant]
     Active Substance: RALTEGRAVIR
  13. LOPINAVIR + RITONAVIR [Concomitant]
     Active Substance: LOPINAVIR\RITONAVIR
  14. FUZEON [Concomitant]
     Active Substance: ENFUVIRTIDE
     Route: 058

REACTIONS (4)
  - Virologic failure [Unknown]
  - Off label use [Unknown]
  - Drug ineffective for unapproved indication [Unknown]
  - Viraemia [Unknown]

NARRATIVE: CASE EVENT DATE: 2013
